FAERS Safety Report 25712474 (Version 2)
Quarter: 2025Q3

REPORT INFORMATION
  Report Type: Spontaneous
  Country: GB (occurrence: GB)
  Receive Date: 20250821
  Receipt Date: 20250911
  Transmission Date: 20251021
  Serious: No
  Sender: PFIZER
  Company Number: GB-PFIZER INC-202500161928

PATIENT
  Age: 8 Year
  Sex: Female

DRUGS (1)
  1. GENOTROPIN [Suspect]
     Active Substance: SOMATROPIN
     Route: 058

REACTIONS (1)
  - Device power source issue [Unknown]
